FAERS Safety Report 12197585 (Version 1)
Quarter: 2016Q1

REPORT INFORMATION
  Report Type: Spontaneous
  Country: NL (occurrence: NL)
  Receive Date: 20160322
  Receipt Date: 20160322
  Transmission Date: 20160526
  Serious: Yes (Hospitalization)
  Sender: FDA-Public Use
  Company Number: NL-ACCORD-039016

PATIENT
  Age: 57 Year
  Sex: Male

DRUGS (1)
  1. QUETIAPINE ACCCORD [Suspect]
     Active Substance: QUETIAPINE
     Indication: IMPULSE-CONTROL DISORDER
     Dosage: RETARD TABLET, STRENGTH: 50 MG
     Dates: start: 20151201, end: 20160105

REACTIONS (3)
  - Fall [Unknown]
  - Therapeutic response unexpected [Recovered/Resolved]
  - Orthostatic hypotension [Recovered/Resolved]

NARRATIVE: CASE EVENT DATE: 20151215
